FAERS Safety Report 25866906 (Version 1)
Quarter: 2025Q4

REPORT INFORMATION
  Report Type: Spontaneous
  Country: US (occurrence: US)
  Receive Date: 20251001
  Receipt Date: 20251001
  Transmission Date: 20260118
  Serious: Yes (Other)
  Sender: SANOFI AVENTIS
  Company Number: US-SA-2025SA289773

PATIENT
  Age: 66 Year
  Sex: Female

DRUGS (12)
  1. DUPIXENT [Suspect]
     Active Substance: DUPILUMAB
     Indication: Dermatitis atopic
     Dosage: 300 MG, QOW
     Route: 058
     Dates: start: 20241001
  2. VITAMIN D3 [Concomitant]
     Active Substance: CHOLECALCIFEROL
  3. LISINOPRIL [Concomitant]
     Active Substance: LISINOPRIL
  4. PANTOPRAZOLE [Concomitant]
     Active Substance: PANTOPRAZOLE
  5. LIOTHYRONINE [Concomitant]
     Active Substance: LIOTHYRONINE
  6. INSULIN LISPRO [Concomitant]
     Active Substance: INSULIN LISPRO
  7. VITAMIN K [Concomitant]
     Active Substance: PHYTONADIONE
  8. CARVEDILOL [Concomitant]
     Active Substance: CARVEDILOL
  9. REPATHA [Concomitant]
     Active Substance: EVOLOCUMAB
  10. MINERALS\VITAMINS [Concomitant]
     Active Substance: MINERALS\VITAMINS
  11. EVENITY [Concomitant]
     Active Substance: ROMOSOZUMAB-AQQG
  12. PROLIA [Concomitant]
     Active Substance: DENOSUMAB

REACTIONS (1)
  - Silent myocardial infarction [Unknown]

NARRATIVE: CASE EVENT DATE: 20250914
